FAERS Safety Report 15623782 (Version 1)
Quarter: 2018Q4

REPORT INFORMATION
  Report Type: Spontaneous
  Country: CH (occurrence: CH)
  Receive Date: 20181115
  Receipt Date: 20181115
  Transmission Date: 20190205
  Serious: Yes (Other)
  Sender: FDA-Public Use
  Company Number: CH-BAXTER-2018BAX027871

PATIENT
  Sex: Female

DRUGS (8)
  1. HERCEPTIN [Suspect]
     Active Substance: TRASTUZUMAB
     Indication: DISEASE PROGRESSION
     Dosage: 6 TIMES
     Route: 065
     Dates: start: 201502, end: 201506
  2. EPIRUBICIN [Suspect]
     Active Substance: EPIRUBICIN
     Indication: HER-2 POSITIVE BREAST CANCER
     Dosage: NEOADJUVANT 2 CYCLES FEC
     Route: 065
  3. 5-FLUOROURACIL [Suspect]
     Active Substance: FLUOROURACIL
     Indication: HER-2 POSITIVE BREAST CANCER
     Dosage: NEOADJUVANT 2 CYCLES FEC
     Route: 065
  4. TAXOTERE [Suspect]
     Active Substance: DOCETAXEL
     Indication: DISEASE PROGRESSION
     Dosage: 6 TIMES
     Route: 065
     Dates: start: 201502, end: 201506
  5. HERCEPTIN [Suspect]
     Active Substance: TRASTUZUMAB
     Dosage: ADJUVANT TREATMENT
     Route: 065
     Dates: start: 201502, end: 201612
  6. AROMASIN [Suspect]
     Active Substance: EXEMESTANE
     Indication: DISEASE PROGRESSION
     Dosage: ADJUVANT TREATMENT
     Route: 065
     Dates: start: 201507
  7. ENDOXAN 1 G. TROCKENSUBSTANZ ZUR INTRAVEN?SEN INFUSION [Suspect]
     Active Substance: CYCLOPHOSPHAMIDE
     Indication: DISEASE PROGRESSION
     Dosage: 6 TIMES
     Route: 065
     Dates: start: 201502, end: 201506
  8. ENDOXAN 1 G. TROCKENSUBSTANZ ZUR INTRAVEN?SEN INFUSION [Suspect]
     Active Substance: CYCLOPHOSPHAMIDE
     Indication: HER-2 POSITIVE BREAST CANCER
     Dosage: NEOADJUVANT 2 CYCLES FEC
     Route: 065

REACTIONS (4)
  - Metastases to central nervous system [Unknown]
  - Disease progression [Unknown]
  - Metastases to lymph nodes [Unknown]
  - Metastases to bone [Unknown]

NARRATIVE: CASE EVENT DATE: 201806
